FAERS Safety Report 8425995-0 (Version None)
Quarter: 2012Q2

REPORT INFORMATION
  Report Type: 
  Country: None (occurrence: None)
  Receive Date: 20120323
  Receipt Date: 20110308
  Transmission Date: 20120825
  Serious: Yes (Other)
  Sender: FDA-Public Use
  Company Number: 163-21880-11021533

PATIENT
  Age: 80 Year
  Sex: Female
  Weight: 65.7716 kg

DRUGS (26)
  1. TRAZODONE HCL [Concomitant]
  2. REVLIMID [Suspect]
     Indication: MULTIPLE MYELOMA
     Dosage: 10 MG, 21 DAYS WITH 7 DAYS OFF, PO
     Route: 048
     Dates: start: 20101019
  3. ACYCLOVIR [Concomitant]
  4. ASPIRIN [Concomitant]
  5. LOMOTIL [Concomitant]
  6. NAPROXEN (ALEVE) [Concomitant]
  7. ALIGN (BIFIDOBACTERIUM INFANTIS) [Concomitant]
  8. LIALDA [Concomitant]
  9. NEURONTIN [Concomitant]
  10. PROCARDIA [Concomitant]
  11. CHOLESTYRAMINE (COLESTYRAMINE) [Concomitant]
  12. VITAMIN D [Concomitant]
  13. XEFAXAN (CEFTRIAXONE SODIUM) [Concomitant]
  14. ZETIA [Concomitant]
  15. ZYRTEC [Concomitant]
  16. FISH OIL [Concomitant]
  17. GLUCOSAMINE/CHONDROITIN (GLUCOSAMINE W/CHONDROITIN SULFATE) [Concomitant]
  18. IBUPROFEN [Concomitant]
  19. PRAVACHOL [Concomitant]
  20. VICODIN [Concomitant]
  21. LEXAPRO [Concomitant]
  22. POTASSIUM ACETATE [Concomitant]
  23. RESTASIS [Concomitant]
  24. ZOMETA [Concomitant]
  25. LIBRAX [Concomitant]
  26. PRILOSEC [Concomitant]

REACTIONS (4)
  - BONE PAIN [None]
  - NASOPHARYNGITIS [None]
  - RASH ERYTHEMATOUS [None]
  - RASH GENERALISED [None]
